FAERS Safety Report 6492045-5 (Version None)
Quarter: 2009Q4

REPORT INFORMATION
  Report Type: 
  Country: None (occurrence: None)
  Receive Date: 20091208
  Receipt Date: 20091123
  Transmission Date: 20100525
  Serious: Yes (Death)
  Sender: FDA-Public Use
  Company Number: 1-20818660

PATIENT
  Sex: Female

DRUGS (2)
  1. WARFARIN SODIUM [Suspect]
     Indication: ANTICOAGULANT THERAPY
     Dosage: 3.5 MG/DAY (MOTHER), TRANSPLACENTAL
     Route: 064
  2. MOTHER: UNFRACTIONATED HEPARIN 5,000 TO 7,500 IU [Concomitant]

REACTIONS (5)
  - CARDIAC ARREST [None]
  - CEREBRAL HAEMORRHAGE FOETAL [None]
  - CEREBRAL VENTRICLE DILATATION [None]
  - MATERNAL DRUGS AFFECTING FOETUS [None]
  - STILLBIRTH [None]
